FAERS Safety Report 4569479-9 (Version None)
Quarter: 2005Q1

REPORT INFORMATION
  Report Type: 
  Country: None (occurrence: None)
  Receive Date: 20050203
  Receipt Date: 20050124
  Transmission Date: 20050727
  Serious: Yes (Hospitalization)
  Sender: FDA-Public Use
  Company Number: ES-BRISTOL-MYERS SQUIBB COMPANY-12837597

PATIENT
  Age: 78 Year
  Sex: Female

DRUGS (2)
  1. DEPRAX [Suspect]
     Indication: DEPRESSION
     Route: 048
     Dates: start: 20040804, end: 20040817
  2. ESERTIA [Suspect]
     Indication: DEPRESSION
     Route: 048
     Dates: start: 20040804, end: 20040817

REACTIONS (1)
  - HYPONATRAEMIA [None]
